FAERS Safety Report 8067110-1 (Version None)
Quarter: 2012Q1

REPORT INFORMATION
  Report Type: 
  Country: None (occurrence: None)
  Receive Date: 20120124
  Receipt Date: 20120109
  Transmission Date: 20120608
  Serious: Yes (Other)
  Sender: FDA-Public Use
  Company Number: HU-ARROW GEN-2012-00486

PATIENT
  Age: 18 Year
  Sex: Male

DRUGS (4)
  1. CLONAZEPAM [Suspect]
     Indication: SCHIZOPHRENIA
     Dosage: 4 MG, DAILY SINCE 16 YEARS OF AGE
     Route: 065
  2. HALOPERIDOL [Suspect]
     Indication: PSYCHOTIC DISORDER
     Dosage: 5 MG, DAILY X16 DAYS THEN STOPPED
     Route: 065
  3. OLANZAPINE [Suspect]
     Indication: SCHIZOPHRENIA
     Dosage: 10 MG, DAILY
     Route: 065
  4. RISPERIDONE [Suspect]
     Indication: SCHIZOPHRENIA
     Dosage: 8 MG, DAILY SINCE 16 YEARS OF AGE
     Route: 065

REACTIONS (3)
  - DYSTONIA [None]
  - OCULOGYRIC CRISIS [None]
  - PSYCHOTIC DISORDER [None]
